FAERS Safety Report 23841804 (Version 3)
Quarter: 2024Q2

REPORT INFORMATION
  Report Type: Spontaneous
  Country: IT (occurrence: IT)
  Receive Date: 20240510
  Receipt Date: 20240520
  Transmission Date: 20240715
  Serious: Yes (Death)
  Sender: FDA-Public Use
  Company Number: IT-002147023-NVSC2024IT098662

PATIENT
  Age: 23 Year
  Sex: Male

DRUGS (2)
  1. VOLTAREN [Suspect]
     Active Substance: DICLOFENAC SODIUM
     Indication: Back pain
     Dosage: UNK
     Route: 065
     Dates: start: 20240423
  2. VOLTAREN [Suspect]
     Active Substance: DICLOFENAC SODIUM
     Indication: Chest pain

REACTIONS (5)
  - Myocardial infarction [Fatal]
  - Arterial thrombosis [Fatal]
  - Tremor [Unknown]
  - Hyperhidrosis [Unknown]
  - Lymphoedema [Unknown]

NARRATIVE: CASE EVENT DATE: 20240423
